FAERS Safety Report 11571295 (Version 1)
Quarter: 2015Q3

REPORT INFORMATION
  Report Type: Spontaneous
  Country: US (occurrence: US)
  Receive Date: 20150929
  Receipt Date: 20150929
  Transmission Date: 20151125
  Serious: No
  Sender: FDA-Public Use
  Company Number: US-BANPHARM-20154082

PATIENT
  Age: 88 Year
  Sex: Female
  Weight: 48.53 kg

DRUGS (4)
  1. GINGER ROOT [Concomitant]
  2. CALCIUM [Concomitant]
     Active Substance: CALCIUM
  3. LOPERAMIDE HCL [Suspect]
     Active Substance: LOPERAMIDE HYDROCHLORIDE
     Indication: DIARRHOEA
     Dosage: 2 DF, ONCE,
     Route: 048
     Dates: start: 20150717, end: 20150717
  4. VITAMINS [Concomitant]
     Active Substance: VITAMINS

REACTIONS (3)
  - Rash [Recovering/Resolving]
  - Blister [Recovering/Resolving]
  - Pruritus [Recovering/Resolving]

NARRATIVE: CASE EVENT DATE: 20150717
